FAERS Safety Report 24725478 (Version 1)
Quarter: 2024Q4

REPORT INFORMATION
  Report Type: Spontaneous
  Country: AU (occurrence: AU)
  Receive Date: 20241212
  Receipt Date: 20241212
  Transmission Date: 20250115
  Serious: Yes (Hospitalization, Other)
  Sender: RANBAXY
  Company Number: AU-SUN PHARMACEUTICAL INDUSTRIES LTD-2024R1-482938

PATIENT
  Age: 36 Year
  Sex: Female

DRUGS (21)
  1. DOXORUBICIN [Suspect]
     Active Substance: DOXORUBICIN
     Indication: Primary mediastinal large B-cell lymphoma
     Dosage: 88 MILLIGRAM
     Route: 042
     Dates: start: 20231206, end: 20240320
  2. ASPIRIN [Suspect]
     Active Substance: ASPIRIN
     Indication: Product used for unknown indication
     Dosage: UNK
     Route: 065
  3. ALLOPURINOL [Suspect]
     Active Substance: ALLOPURINOL
     Indication: Lymphoma
     Dosage: 300 MILLIGRAM, QD
     Route: 048
     Dates: start: 20231019, end: 20231103
  4. PREDNISOLONE [Suspect]
     Active Substance: PREDNISOLONE
     Indication: Primary mediastinal large B-cell lymphoma
     Dosage: 100 MILLIGRAM
     Route: 048
     Dates: start: 20231206, end: 20240320
  5. VINCRISTINE [Suspect]
     Active Substance: VINCRISTINE
     Indication: Primary mediastinal large B-cell lymphoma
     Dosage: 2 MILLIGRAM
     Route: 042
     Dates: start: 20231206, end: 202312
  6. VINCRISTINE [Suspect]
     Active Substance: VINCRISTINE
     Dosage: 1 MILLIGRAM
     Route: 042
     Dates: start: 202312, end: 20231227
  7. CYCLOPHOSPHAMIDE [Suspect]
     Active Substance: CYCLOPHOSPHAMIDE
     Indication: Primary mediastinal large B-cell lymphoma
     Dosage: 1300 MILLIGRAM
     Route: 042
     Dates: start: 20231206, end: 20240320
  8. PEMBROLIZUMAB [Suspect]
     Active Substance: PEMBROLIZUMAB
     Indication: Primary mediastinal large B-cell lymphoma
     Dosage: 200 MILLIGRAM
     Route: 042
     Dates: start: 20231027, end: 20240320
  9. RITUXIMAB [Suspect]
     Active Substance: RITUXIMAB
     Indication: Primary mediastinal large B-cell lymphoma
     Dosage: 600 MILLIGRAM
     Route: 042
     Dates: end: 20240320
  10. RITUXIMAB [Suspect]
     Active Substance: RITUXIMAB
     Dosage: 650 MILLIGRAM
     Route: 042
     Dates: start: 20231027
  11. SULFAMETHOXAZOLE\TRIMETHOPRIM [Concomitant]
     Active Substance: SULFAMETHOXAZOLE\TRIMETHOPRIM
     Indication: Prophylaxis
     Dosage: UNK, QD
     Route: 048
     Dates: start: 20231027, end: 20231103
  12. PANADOL [Concomitant]
     Active Substance: ACETAMINOPHEN
     Indication: Migraine
     Dosage: UNK, QD
     Route: 048
     Dates: start: 202310
  13. HYDROCORTISONE [Concomitant]
     Active Substance: HYDROCORTISONE
     Indication: Prophylaxis
     Dosage: 100 MILLIGRAM, QD
     Route: 042
     Dates: start: 20231027, end: 20231027
  14. LIDOCAINE [Concomitant]
     Active Substance: LIDOCAINE
     Indication: Proctalgia
     Dosage: UNK
     Route: 061
  15. MAGNESIUM ASPARTATE [Concomitant]
     Active Substance: MAGNESIUM ASPARTATE
     Indication: Routine health maintenance
     Dosage: 500 MILLIGRAM, QD
     Route: 048
     Dates: start: 202310
  16. PREDNISOLONE [Concomitant]
     Active Substance: PREDNISOLONE
     Indication: Lymphoma
     Dosage: 100 MILLIGRAM, QD
     Route: 048
     Dates: start: 20231019, end: 20231025
  17. SODIUM CHLORIDE [Concomitant]
     Active Substance: SODIUM CHLORIDE
     Indication: Fluid replacement
     Dosage: UNK
     Route: 042
     Dates: start: 20231027, end: 20231027
  18. SODIUM CHLORIDE [Concomitant]
     Active Substance: SODIUM CHLORIDE
     Dosage: 250 MILLILITER, QD
     Route: 042
     Dates: start: 20231027, end: 20231027
  19. TEMAZEPAM [Concomitant]
     Active Substance: TEMAZEPAM
     Indication: Prophylaxis
     Dosage: 5 MILLIGRAM, QD
     Route: 048
     Dates: start: 20231026, end: 20231026
  20. ZINC [Concomitant]
     Active Substance: ZINC
     Indication: Routine health maintenance
     Dosage: 50 MILLIGRAM, QD
     Route: 048
     Dates: start: 202310, end: 202311
  21. CHOLECALCIFEROL [Concomitant]
     Active Substance: CHOLECALCIFEROL
     Indication: Routine health maintenance
     Dosage: 125 MICROGRAM, QD
     Route: 048
     Dates: start: 202310

REACTIONS (4)
  - Febrile neutropenia [Recovered/Resolved]
  - Lymphocytic oesophagitis [Not Recovered/Not Resolved]
  - Rash maculo-papular [Recovered/Resolved]
  - Pyrexia [Recovered/Resolved]

NARRATIVE: CASE EVENT DATE: 20231028
